FAERS Safety Report 21681895 (Version 1)
Quarter: 2022Q4

REPORT INFORMATION
  Report Type: Report from Study
  Country: US (occurrence: US)
  Receive Date: 20221205
  Receipt Date: 20221205
  Transmission Date: 20230113
  Serious: No
  Sender: FDA-Public Use
  Company Number: US-ABBVIE-4189504

PATIENT
  Sex: Female

DRUGS (1)
  1. HUMIRA [Suspect]
     Active Substance: ADALIMUMAB
     Indication: Rheumatoid arthritis
     Dosage: LAST ADMINISTRATION DATE WAS MAY 2022?FORM STRENGTH 40 MILLIGRAM
     Route: 058

REACTIONS (3)
  - Pain [Unknown]
  - Grip strength decreased [Unknown]
  - Inappropriate schedule of product administration [Unknown]
